FAERS Safety Report 23186006 (Version 1)
Quarter: 2023Q4

REPORT INFORMATION
  Report Type: Spontaneous
  Country: IT (occurrence: IT)
  Receive Date: 20231115
  Receipt Date: 20231115
  Transmission Date: 20240110
  Serious: Yes (Other)
  Sender: FDA-Public Use
  Company Number: IT-PFIZER INC-202300359960

PATIENT
  Age: 67 Year
  Sex: Male

DRUGS (5)
  1. FILGRASTIM [Suspect]
     Active Substance: FILGRASTIM
     Indication: Prophylaxis
     Dosage: 4 DOSES FOR EACH CYCLE, 2 AFTER DAY 1 AND 2 AFTER DAY 8 OF CHEMOTHERAPY CYCLIC
     Dates: start: 202206, end: 202212
  2. FILGRASTIM [Suspect]
     Active Substance: FILGRASTIM
     Dosage: UNK
  3. GEMCITABINE [Suspect]
     Active Substance: GEMCITABINE
     Indication: Bladder transitional cell carcinoma
     Dosage: 1000 MG/MQ, ON DAYS 1 AND 8, ADMINISTERED EVERY 21 DAYS, FIRST CYCLE
     Dates: start: 202206
  4. SOTROVIMAB [Concomitant]
     Active Substance: SOTROVIMAB
     Dosage: 500 MG
  5. NIRMATRELVIR\RITONAVIR [Concomitant]
     Active Substance: NIRMATRELVIR\RITONAVIR
     Dosage: 150 MG/100 MG, 2X/DAY, FOR 5 DAYS

REACTIONS (1)
  - Pneumonitis [Recovering/Resolving]

NARRATIVE: CASE EVENT DATE: 20220101
